FAERS Safety Report 7417110-7 (Version None)
Quarter: 2011Q2

REPORT INFORMATION
  Report Type: 
  Country: None (occurrence: None)
  Receive Date: 20110415
  Receipt Date: 20110204
  Transmission Date: 20111010
  Serious: No
  Sender: FDA-Public Use
  Company Number: US-B.I. PHARMACEUTICALS,INC./RIDGEFIELD-2011-BP-03771BP

PATIENT
  Sex: Female

DRUGS (1)
  1. PRADAXA [Suspect]
     Indication: ATRIAL FIBRILLATION
     Dosage: 300 MG
     Route: 048
     Dates: start: 20110107

REACTIONS (7)
  - CONSTIPATION [None]
  - ABDOMINAL PAIN [None]
  - FATIGUE [None]
  - MALAISE [None]
  - FLATULENCE [None]
  - DIARRHOEA [None]
  - OESOPHAGEAL PAIN [None]
